FAERS Safety Report 6641423-X (Version None)
Quarter: 2010Q1

REPORT INFORMATION
  Report Type: 
  Country: None (occurrence: None)
  Receive Date: 20100317
  Receipt Date: 20100317
  Transmission Date: 20100710
  Serious: Yes (Hospitalization)
  Sender: FDA-Public Use
  Company Number: None

PATIENT
  Age: 45 Year
  Sex: Male

DRUGS (1)
  1. PREDNISONE [Suspect]
     Indication: TRANSPLANT REJECTION
     Dosage: 37.5 MG EVERY DAY PO
     Route: 048
     Dates: start: 20090618, end: 20090718

REACTIONS (6)
  - ANION GAP INCREASED [None]
  - FATIGUE [None]
  - GLYCOSYLATED HAEMOGLOBIN INCREASED [None]
  - HYPERGLYCAEMIA [None]
  - POLYDIPSIA [None]
  - POLYURIA [None]
